FAERS Safety Report 23453477 (Version 1)
Quarter: 2024Q1

REPORT INFORMATION
  Report Type: Spontaneous
  Country: US (occurrence: US)
  Receive Date: 20240129
  Receipt Date: 20240129
  Transmission Date: 20240409
  Serious: Yes (Other)
  Sender: FDA-Public Use
  Company Number: US-Stemline Therapeutics, Inc.-2024ST000562

PATIENT
  Age: 64 Year
  Sex: Female

DRUGS (1)
  1. ORSERDU [Suspect]
     Active Substance: ELACESTRANT
     Indication: Product used for unknown indication
     Route: 048
     Dates: start: 20230427

REACTIONS (10)
  - Weight decreased [Not Recovered/Not Resolved]
  - Product dose omission in error [Recovered/Resolved]
  - Lichenoid keratosis [Unknown]
  - Feeling abnormal [Unknown]
  - Memory impairment [Unknown]
  - Pruritus [Unknown]
  - Decreased appetite [Not Recovered/Not Resolved]
  - Nausea [Not Recovered/Not Resolved]
  - Gastrointestinal hypomotility [Unknown]
  - Hypophagia [Unknown]
